FAERS Safety Report 8243644-1 (Version None)
Quarter: 2012Q1

REPORT INFORMATION
  Report Type: 
  Country: None (occurrence: None)
  Receive Date: 20120316
  Receipt Date: 20110805
  Transmission Date: 20120608
  Serious: Yes (Other)
  Sender: FDA-Public Use
  Company Number: PHHY2011US61079

PATIENT
  Sex: Female

DRUGS (1)
  1. ILARIS [Suspect]
     Indication: ARTHRALGIA
     Dosage: 150 MG, EVERY 8 WEEKS, SUBCUTANEOUS
     Route: 058

REACTIONS (1)
  - DRUG INEFFECTIVE [None]
